FAERS Safety Report 22381126 (Version 2)
Quarter: 2023Q2

REPORT INFORMATION
  Report Type: Spontaneous
  Country: PK (occurrence: PK)
  Receive Date: 20230530
  Receipt Date: 20230627
  Transmission Date: 20230721
  Serious: Yes (Other)
  Sender: FDA-Public Use
  Company Number: PK-SUN PHARMACEUTICAL INDUSTRIES LTD-2023R1-391651

PATIENT
  Age: 38 Year
  Sex: Female

DRUGS (2)
  1. METHOTREXATE [Suspect]
     Active Substance: METHOTREXATE
     Indication: Optic neuropathy
     Dosage: 20 MILLIGRAM, WEEKLY
     Route: 065
  2. PREDNISOLONE [Suspect]
     Active Substance: PREDNISOLONE
     Indication: Optic neuropathy
     Dosage: 10 MILLIGRAM, QOD
     Route: 065

REACTIONS (2)
  - Disease recurrence [Unknown]
  - Alopecia [Unknown]

NARRATIVE: CASE EVENT DATE: 20190201
